FAERS Safety Report 5462450-4 (Version None)
Quarter: 2007Q3

REPORT INFORMATION
  Report Type: 
  Country: None (occurrence: None)
  Receive Date: 20070920
  Receipt Date: 20070910
  Transmission Date: 20080115
  Serious: Yes (Other)
  Sender: FDA-Public Use
  Company Number: CA-JNJFOC-20070205391

PATIENT
  Age: 42 Year
  Sex: Male
  Weight: 83 kg

DRUGS (8)
  1. REMICADE [Suspect]
     Route: 042
  2. REMICADE [Suspect]
     Route: 042
  3. REMICADE [Suspect]
     Indication: CROHN'S DISEASE
     Route: 042
  4. TYLENOL (CAPLET) [Concomitant]
     Indication: PREMEDICATION
     Route: 048
  5. BENADRYL [Concomitant]
     Indication: PREMEDICATION
     Route: 042
  6. SOLU-CORTEF [Concomitant]
     Indication: PREMEDICATION
     Route: 042
  7. AMITRIPTYLINE HCL [Concomitant]
     Indication: SLEEP DISORDER
     Route: 048
  8. DIDROCAL [Concomitant]
     Indication: OSTEOPOROSIS
     Route: 048

REACTIONS (2)
  - SKIN LESION [None]
  - VISION BLURRED [None]
